FAERS Safety Report 25126693 (Version 1)
Quarter: 2025Q1

REPORT INFORMATION
  Report Type: Spontaneous
  Country: US (occurrence: US)
  Receive Date: 20250327
  Receipt Date: 20250327
  Transmission Date: 20250408
  Serious: Yes (Death, Other)
  Sender: Kenvue
  Company Number: US-KENVUE-20250306513

PATIENT
  Age: 44 Year
  Sex: Female

DRUGS (15)
  1. ACETAMINOPHEN [Suspect]
     Active Substance: ACETAMINOPHEN
     Indication: Product used for unknown indication
     Route: 065
  2. IBUPROFEN [Suspect]
     Active Substance: IBUPROFEN
     Indication: Product used for unknown indication
     Route: 065
  3. KETAMINE [Suspect]
     Active Substance: KETAMINE
     Indication: Product used for unknown indication
     Route: 065
  4. MIDOMAFETAMINE [Suspect]
     Active Substance: MIDOMAFETAMINE
     Indication: Product used for unknown indication
     Route: 065
  5. TENAMFETAMINE [Suspect]
     Active Substance: TENAMFETAMINE
     Indication: Product used for unknown indication
     Route: 065
  6. COCAINE [Suspect]
     Active Substance: COCAINE
     Indication: Product used for unknown indication
     Route: 065
  7. BENZOYLECGONINE [Suspect]
     Active Substance: BENZOYLECGONINE
     Indication: Product used for unknown indication
     Route: 065
  8. PHENACETIN [Suspect]
     Active Substance: PHENACETIN
     Indication: Product used for unknown indication
     Route: 065
  9. PYRILAMINE [Suspect]
     Active Substance: PYRILAMINE
     Indication: Product used for unknown indication
     Route: 065
  10. TRAZODONE [Suspect]
     Active Substance: TRAZODONE HYDROCHLORIDE
     Indication: Product used for unknown indication
     Route: 065
  11. CAFFEINE [Suspect]
     Active Substance: CAFFEINE
     Indication: Product used for unknown indication
     Route: 065
  12. ALPRAZOLAM [Suspect]
     Active Substance: ALPRAZOLAM
     Indication: Product used for unknown indication
     Route: 065
  13. KETOROLAC [Suspect]
     Active Substance: KETOROLAC TROMETHAMINE
     Indication: Product used for unknown indication
     Route: 065
  14. PAROXETINE [Suspect]
     Active Substance: PAROXETINE
     Indication: Product used for unknown indication
     Route: 065
  15. illicit drugs [Concomitant]
     Indication: Product used for unknown indication
     Route: 065

REACTIONS (5)
  - Completed suicide [Fatal]
  - Drug abuse [Fatal]
  - Injury [Fatal]
  - Fall [Fatal]
  - Toxicity to various agents [Fatal]
